FAERS Safety Report 7010916-8 (Version None)
Quarter: 2010Q3

REPORT INFORMATION
  Report Type: 
  Country: None (occurrence: None)
  Receive Date: 20100923
  Receipt Date: 20100923
  Transmission Date: 20110219
  Serious: Yes (Other)
  Sender: FDA-Public Use
  Company Number: None

PATIENT
  Age: 56 Year
  Sex: Female
  Weight: 54.4316 kg

DRUGS (1)
  1. FLOMAX [Suspect]
     Indication: CALCULUS URETERIC
     Dosage: 0.4 MG DAILY PO
     Route: 048

REACTIONS (2)
  - CHEST PAIN [None]
  - HEART RATE ABNORMAL [None]
